FAERS Safety Report 6700712-0 (Version None)
Quarter: 2010Q2

REPORT INFORMATION
  Report Type: 
  Country: None (occurrence: None)
  Receive Date: 20100426
  Receipt Date: 20100415
  Transmission Date: 20101027
  Serious: Yes (Hospitalization)
  Sender: FDA-Public Use
  Company Number: UTC-000990

PATIENT
  Age: 64 Year
  Weight: 62 kg

DRUGS (12)
  1. REMODULIN [Suspect]
     Indication: PULMONARY HYPERTENSION
     Dosage: 10.8 UG/KG (0.0075 UG/KG, 1 IN 1 MIN), SUBCUTANEOUS
     Route: 058
     Dates: start: 20100329
  2. TRACLEER [Concomitant]
  3. REVATIO [Concomitant]
  4. LASIX [Concomitant]
  5. SERETIDE [Concomitant]
  6. NEBIVOLOL [Concomitant]
  7. FERROUS SULFATE [Concomitant]
  8. SINTROM [Concomitant]
  9. ACETAMINOPHEN [Concomitant]
  10. VERSATIS (LIDOCAINE) [Concomitant]
  11. OINTMENT D [Concomitant]
  12. NABILONE [Concomitant]

REACTIONS (6)
  - BLOOD PRESSURE DECREASED [None]
  - INJECTION SITE ERYTHEMA [None]
  - INJECTION SITE PAIN [None]
  - LOCAL SWELLING [None]
  - PNEUMONIA [None]
  - REFUSAL OF TREATMENT BY PATIENT [None]
